FAERS Safety Report 7726545-4 (Version None)
Quarter: 2011Q3

REPORT INFORMATION
  Report Type: 
  Country: None (occurrence: None)
  Receive Date: 20110902
  Receipt Date: 20110822
  Transmission Date: 20111222
  Serious: Yes (Other)
  Sender: FDA-Public Use
  Company Number: PHEH2011US02201

PATIENT
  Sex: Female
  Weight: 58.2 kg

DRUGS (1)
  1. AREDIA [Suspect]
     Indication: OSTEOPOROSIS
     Dosage: 30 MG, EVERY 3 MONTHS
     Route: 042

REACTIONS (3)
  - OEDEMA PERIPHERAL [None]
  - INTESTINAL ISCHAEMIA [None]
  - FOOT FRACTURE [None]
